FAERS Safety Report 9331693 (Version 2)
Quarter: 2013Q3

REPORT INFORMATION
  Report Type: Spontaneous
  Country: GB (occurrence: GB)
  Receive Date: 20130605
  Receipt Date: 20130827
  Transmission Date: 20140515
  Serious: Yes (Hospitalization)
  Sender: FDA-Public Use
  Company Number: GB-ABBOTT-13P-167-1098760-00

PATIENT
  Sex: Male
  Weight: 33.3 kg

DRUGS (6)
  1. HUMIRA VIAL [Suspect]
     Indication: CROHN^S DISEASE
     Route: 058
  2. LIDOCAINE [Suspect]
     Indication: PRODUCT USED FOR UNKNOWN INDICATION
  3. PREDNISOLONE [Concomitant]
     Indication: CROHN^S DISEASE
     Route: 048
  4. OMEPRAZOLE [Concomitant]
     Indication: GASTRITIS
     Route: 048
  5. METOPROLOL [Concomitant]
     Indication: HYPERTENSION
     Route: 048
  6. TRAMADOL [Concomitant]
     Indication: PAIN

REACTIONS (3)
  - Immunodeficiency [Unknown]
  - Wrong technique in drug usage process [Unknown]
  - Drug effect decreased [Unknown]
